FAERS Safety Report 10956540 (Version 1)
Quarter: 2015Q1

REPORT INFORMATION
  Report Type: Spontaneous
  Country: US (occurrence: None)
  Receive Date: 20150325
  Receipt Date: 20150325
  Transmission Date: 20150721
  Serious: Yes (Other)
  Sender: FDA-Public Use
  Company Number: None

PATIENT
  Age: 39 Year
  Sex: Male
  Weight: 62.14 kg

DRUGS (7)
  1. THERAGRAN-M [Concomitant]
     Active Substance: VITAMINS
  2. QUETIAPINE 50MG [Suspect]
     Active Substance: QUETIAPINE
     Indication: INSOMNIA
     Route: 048
     Dates: start: 20150324, end: 20150324
  3. PROPYLTHIOURACIL. [Concomitant]
     Active Substance: PROPYLTHIOURACIL
  4. QUETIAPINE 50MG [Suspect]
     Active Substance: QUETIAPINE
     Indication: IRRITABILITY
     Route: 048
     Dates: start: 20150324, end: 20150324
  5. MIRTAZAPINE. [Concomitant]
     Active Substance: MIRTAZAPINE
  6. ECONAZOLE NITRATE. [Concomitant]
     Active Substance: ECONAZOLE NITRATE
  7. QUETIAPINE 50MG [Suspect]
     Active Substance: QUETIAPINE
     Indication: MOOD SWINGS
     Route: 048
     Dates: start: 20150324, end: 20150324

REACTIONS (5)
  - Loss of consciousness [None]
  - Blood pressure decreased [None]
  - Dizziness [None]
  - Skin abrasion [None]
  - Fall [None]

NARRATIVE: CASE EVENT DATE: 20150321
